FAERS Safety Report 17967079 (Version 1)
Quarter: 2020Q3

REPORT INFORMATION
  Report Type: Other
  Country: GB (occurrence: GB)
  Receive Date: 20200701
  Receipt Date: 20200701
  Transmission Date: 20201103
  Serious: No
  Sender: FDA-Public Use
  Company Number: GB-LUPIN PHARMACEUTICALS INC.-2019-06888

PATIENT
  Age: 75 Year
  Sex: Male
  Weight: 63 kg

DRUGS (29)
  1. REPAGLINIDE. [Concomitant]
     Active Substance: REPAGLINIDE
     Indication: ILL-DEFINED DISORDER
     Dosage: 02 DOSAGE FORM, TID (2 THREE TIMES A DAY 30 MINS BEFORE FOOD)
     Route: 065
     Dates: start: 20190511
  2. CASSIA SENNA [Concomitant]
     Active Substance: HERBALS\SENNOSIDES
     Indication: ILL-DEFINED DISORDER
     Dosage: UNK UNK, QD (TAKE 1 OR 2 AT NIGHT)
     Route: 065
     Dates: start: 20190816
  3. LATANOPROST. [Concomitant]
     Active Substance: LATANOPROST
     Indication: ILL-DEFINED DISORDER
     Dosage: UNK UNK, QD (ONE DROP TO BOTH EYES IN THE EVENING)
     Route: 065
     Dates: start: 20190511
  4. ZEROBASE [PARAFFIN, LIQUID] [Concomitant]
     Indication: ILL-DEFINED DISORDER
     Dosage: UNK, APPLY FREQUENTLY TO KEEP SKIN MOIST APPLY 4 TIM...
     Route: 065
     Dates: start: 20190708, end: 20190723
  5. CANDESARTAN. [Concomitant]
     Active Substance: CANDESARTAN
     Indication: ILL-DEFINED DISORDER
     Dosage: 1 DOSAGE FORM, QD
     Route: 065
     Dates: start: 20190511
  6. ADIPINE [NIFEDIPINE] [Concomitant]
     Indication: ILL-DEFINED DISORDER
     Dosage: 1 DOSAGE FORM, BID
     Route: 065
     Dates: start: 20190511, end: 20190611
  7. KETOCONAZOLE. [Concomitant]
     Active Substance: KETOCONAZOLE
     Indication: ILL-DEFINED DISORDER
     Dosage: UNK UNK, AS DIRECTED
     Route: 065
     Dates: start: 20190816, end: 20190817
  8. VISCOTEARS [Concomitant]
     Active Substance: CARBOMER
     Indication: ILL-DEFINED DISORDER
     Dosage: 1 GTT DROPS, PRN
     Route: 065
     Dates: start: 20190626, end: 20190703
  9. LORATADINE. [Concomitant]
     Active Substance: LORATADINE
     Indication: ILL-DEFINED DISORDER
     Dosage: UNK UNK, QD, TAKE ONE DAILY
     Route: 065
     Dates: start: 20190708, end: 20190807
  10. LINAGLIPTIN [Concomitant]
     Active Substance: LINAGLIPTIN
     Indication: ILL-DEFINED DISORDER
     Dosage: UNK UNK, QD
     Route: 065
     Dates: start: 20190511
  11. ACIDEX [CALCIUM CARBONATE;SODIUM ALGINATE;SODIUM BICARBONATE] [Concomitant]
     Indication: ILL-DEFINED DISORDER
     Dosage: UNK UNK, QID (2X5ML SPOON)
     Route: 065
     Dates: start: 20190816, end: 20190828
  12. SIMVASTATIN. [Suspect]
     Active Substance: SIMVASTATIN
     Indication: PRODUCT USED FOR UNKNOWN INDICATION
     Dosage: 1 DOSAGE FORM, QD (ONE TO BE TAKEN AT NIGHT)
     Route: 065
     Dates: start: 20190511
  13. GLYCERYL TRINITRATE [Concomitant]
     Active Substance: NITROGLYCERIN
     Indication: ILL-DEFINED DISORDER
     Dosage: UNK UNK, AS DIRECTED
     Route: 065
     Dates: start: 20190805
  14. HYPROMELLOSE [Concomitant]
     Active Substance: HYPROMELLOSES
     Indication: ILL-DEFINED DISORDER
     Dosage: UNK UNK, PRN (ONE DROP AS NEEDED)
     Route: 065
     Dates: start: 20190816
  15. TRAMADOL. [Concomitant]
     Active Substance: TRAMADOL
     Indication: ILL-DEFINED DISORDER
     Dosage: 1 DOSAGE FORM, QID (WHEN REQUIRED)
     Route: 065
     Dates: start: 20190816
  16. NEBIVOLOL. [Concomitant]
     Active Substance: NEBIVOLOL
     Indication: ILL-DEFINED DISORDER
     Dosage: 1 DOSAGE FORM, QD
     Route: 065
     Dates: start: 20190511
  17. BRINZOLAMIDE [Concomitant]
     Active Substance: BRINZOLAMIDE
     Indication: ILL-DEFINED DISORDER
     Dosage: 2 GTT DROPS, BID
     Route: 065
     Dates: start: 20190511
  18. BETAMETHASONE VALERATE. [Concomitant]
     Active Substance: BETAMETHASONE VALERATE
     Indication: ILL-DEFINED DISORDER
     Dosage: UNK UNK, BID, APPLY TWICE DAILY
     Route: 065
     Dates: start: 20190816
  19. CLOBETASONE BUTYRATE [Concomitant]
     Active Substance: CLOBETASONE BUTYRATE
     Indication: ILL-DEFINED DISORDER
     Dosage: UNK UNK, BID (APPLY 2 TIMES/DAY)
     Route: 065
     Dates: start: 20190708, end: 20190717
  20. RANITIDINE. [Concomitant]
     Active Substance: RANITIDINE
     Indication: ILL-DEFINED DISORDER
     Dosage: 1 DOSAGE FORM, BID
     Route: 065
     Dates: start: 20190511
  21. MUCOGEL [ALUMINIUM HYDROXIDE;MAGNESIUM HYDROXIDE] [Concomitant]
     Indication: ILL-DEFINED DISORDER
     Dosage: UNK UNK, QID (TWO TEASPOONSFUL)
     Route: 065
     Dates: start: 20190816
  22. QUININE [Concomitant]
     Active Substance: QUININE
     Indication: ILL-DEFINED DISORDER
     Dosage: 1 DOSAGE FORM, QD (AT NIGHT)
     Route: 065
     Dates: start: 20190511, end: 20190611
  23. NIFEDIPRESS [Concomitant]
     Indication: ILL-DEFINED DISORDER
     Dosage: 1 DOSAGE FORM, BID
     Route: 065
     Dates: start: 20190604, end: 20190702
  24. ALFUZOSIN [Concomitant]
     Active Substance: ALFUZOSIN
     Indication: ILL-DEFINED DISORDER
     Dosage: 1 DOSAGE FORM, QD
     Route: 065
     Dates: start: 20190511
  25. ACETYLSALICYLIC ACID [Concomitant]
     Active Substance: ASPIRIN
     Indication: ILL-DEFINED DISORDER
     Dosage: 1 DOSAGE FORM, QD
     Route: 065
     Dates: start: 20190511
  26. NICARDIPINE HYDROCHLORIDE. [Concomitant]
     Active Substance: NICARDIPINE HYDROCHLORIDE
     Indication: ILL-DEFINED DISORDER
     Dosage: UNK, 2TDS
     Route: 065
     Dates: start: 20190511
  27. FLUPENTIXOL [Concomitant]
     Active Substance: FLUPENTIXOL
     Indication: ILL-DEFINED DISORDER
     Dosage: 1 DOSAGE FORM, QD
     Route: 065
     Dates: start: 20190511
  28. DOXYCYCLINE. [Concomitant]
     Active Substance: DOXYCYCLINE
     Indication: ILL-DEFINED DISORDER
     Dosage: UNK UNK, QD
     Route: 065
     Dates: start: 20190723, end: 20190806
  29. TADALAFIL. [Concomitant]
     Active Substance: TADALAFIL
     Indication: ILL-DEFINED DISORDER
     Dosage: UNK UNK, AS DIRECTED
     Route: 065
     Dates: start: 20190816

REACTIONS (4)
  - Abnormal loss of weight [Unknown]
  - Insomnia [Unknown]
  - Alopecia [Unknown]
  - Pruritus [Recovering/Resolving]
